FAERS Safety Report 22016502 (Version 2)
Quarter: 2023Q1

REPORT INFORMATION
  Report Type: Spontaneous
  Country: IT (occurrence: IT)
  Receive Date: 20230221
  Receipt Date: 20230228
  Transmission Date: 20230417
  Serious: Yes (Hospitalization)
  Sender: FDA-Public Use
  Company Number: None

PATIENT
  Age: 48 Year
  Sex: Male

DRUGS (2)
  1. AUBAGIO [Suspect]
     Active Substance: TERIFLUNOMIDE
     Indication: Multiple sclerosis
     Dosage: 14 MG, QD
     Route: 048
     Dates: start: 20211105, end: 20220202
  2. PAROXETINE MESYLATE [Concomitant]
     Active Substance: PAROXETINE MESYLATE

REACTIONS (1)
  - Renal oncocytoma [Recovered/Resolved]

NARRATIVE: CASE EVENT DATE: 20220209
